FAERS Safety Report 4676579-1 (Version None)
Quarter: 2005Q2

REPORT INFORMATION
  Report Type: 
  Country: None (occurrence: None)
  Receive Date: 20050527
  Receipt Date: 20050127
  Transmission Date: 20051028
  Serious: Yes (Hospitalization)
  Sender: FDA-Public Use
  Company Number: FR-ROCHE-393814

PATIENT
  Age: 53 Year
  Sex: Male
  Weight: 62 kg

DRUGS (7)
  1. CELLCEPT [Suspect]
     Indication: DRUG USE FOR UNKNOWN INDICATION
     Route: 042
     Dates: start: 20041125, end: 20041127
  2. HYPNOVEL (INJ) [Suspect]
     Indication: DRUG USE FOR UNKNOWN INDICATION
     Route: 042
     Dates: start: 20041125, end: 20041128
  3. PROGRAF [Interacting]
     Indication: DRUG USE FOR UNKNOWN INDICATION
     Route: 042
     Dates: start: 20041125, end: 20041128
  4. PROGRAF [Concomitant]
     Route: 048
     Dates: start: 20040804, end: 20041125
  5. OFLOCET [Concomitant]
     Indication: DRUG USE FOR UNKNOWN INDICATION
     Route: 042
     Dates: start: 20041125, end: 20041202
  6. SOLU-MEDROL [Concomitant]
     Indication: DRUG USE FOR UNKNOWN INDICATION
     Route: 042
     Dates: start: 20041125
  7. FENTANYL [Concomitant]
     Route: 042
     Dates: start: 20041125, end: 20041128

REACTIONS (8)
  - ADRENAL MASS [None]
  - CONFUSIONAL STATE [None]
  - CONVULSION [None]
  - DISORIENTATION [None]
  - DRUG INTERACTION [None]
  - HALLUCINATION [None]
  - METASTASES TO ADRENALS [None]
  - OVERDOSE [None]
